FAERS Safety Report 7691934-3 (Version None)
Quarter: 2011Q3

REPORT INFORMATION
  Report Type: 
  Country: None (occurrence: None)
  Receive Date: 20110818
  Receipt Date: 20110805
  Transmission Date: 20111222
  Serious: Yes (Life-Threatening, Hospitalization)
  Sender: FDA-Public Use
  Company Number: US-CELGENEUS-163-C5013-09111755

PATIENT
  Sex: Male
  Weight: 84.126 kg

DRUGS (30)
  1. LENALIDOMIDE [Suspect]
     Dosage: 25 MILLIGRAM
     Route: 048
     Dates: start: 20091207, end: 20091216
  2. DEXAMETHASONE [Concomitant]
     Dosage: 20 MILLIGRAM
     Route: 041
     Dates: start: 20091116, end: 20091116
  3. CELEXA [Concomitant]
     Indication: DEPRESSION
     Dosage: 10 MILLIGRAM
     Route: 048
  4. OS-CAL 500 PLUS D [Concomitant]
     Dosage: 1 TABLET
     Route: 048
     Dates: end: 20091120
  5. DIPHENHYDRAMINE HCL [Concomitant]
     Indication: PROPHYLAXIS
     Dosage: 25 MILLIGRAM
     Route: 041
     Dates: start: 20091116, end: 20091116
  6. SODIUM CHLORIDE [Concomitant]
     Dosage: 500 MILLILITER
     Route: 040
     Dates: start: 20091119, end: 20091119
  7. DOCETAXEL [Suspect]
     Indication: PROSTATE CANCER
     Dosage: 75 MILLIGRAM/SQ. METER
     Route: 041
     Dates: start: 20091116
  8. AMBIEN [Concomitant]
     Indication: INSOMNIA
     Dosage: 10 MILLIGRAM
     Route: 048
     Dates: start: 20091120
  9. ROCEPHIN [Concomitant]
     Indication: URINARY TRACT INFECTION
     Dosage: 1 GRAM
     Route: 041
     Dates: start: 20091120, end: 20091121
  10. ONDANSETRON [Concomitant]
     Indication: ANTIEMETIC SUPPORTIVE CARE
     Dosage: 8 MILLIGRAM
     Route: 048
     Dates: start: 20091123
  11. LENALIDOMIDE [Suspect]
     Indication: PROSTATE CANCER
     Dosage: 25 MILLIGRAM
     Route: 048
     Dates: start: 20091117, end: 20091120
  12. DEXAMETHASONE [Concomitant]
     Indication: CHEMOTHERAPY
     Dosage: 8 MILLIGRAM
     Route: 048
     Dates: start: 20091115, end: 20091117
  13. POTASSIUM CHLORIDE [Concomitant]
     Dosage: 30 MILLIEQUIVALENTS
     Route: 048
     Dates: start: 20091119
  14. PREDNISONE [Suspect]
     Dosage: 10 MILLIGRAM
     Route: 048
     Dates: start: 20091123
  15. DEMEROL [Concomitant]
     Dosage: 75 MILLIGRAM
     Route: 041
     Dates: start: 20091119
  16. AMPICILLIN SODIUM [Concomitant]
     Indication: INFECTION
     Dosage: 500 MILLIGRAM
     Route: 048
     Dates: start: 20091123, end: 20091130
  17. REGLAN [Concomitant]
     Indication: CONSTIPATION
     Dosage: 5 MILLIGRAM
     Route: 048
     Dates: start: 20091119, end: 20091119
  18. OS-CAL 500 PLUS D [Concomitant]
     Route: 048
     Dates: start: 20091123
  19. MESALAMINE [Concomitant]
     Route: 054
     Dates: end: 20091120
  20. POLYETHYLENE GLYCOL-3350 [Concomitant]
     Indication: CONSTIPATION
     Dosage: 17 GRAM
     Route: 048
     Dates: start: 20091119, end: 20091120
  21. TAXOTERE [Concomitant]
     Dosage: 75 MILLIGRAM/SQ. METER
     Route: 065
  22. PREDNISONE [Suspect]
     Indication: PROSTATE CANCER
     Dosage: 10 MILLIGRAM
     Route: 048
     Dates: start: 20091116, end: 20091120
  23. NAPROXEN [Concomitant]
     Indication: PAIN
     Dosage: 220 MILLIGRAM
     Route: 048
     Dates: start: 20091001, end: 20091120
  24. LEVOFLOXACIN [Concomitant]
     Indication: BACTERIAL INFECTION
     Dosage: 500 MILLIGRAM
     Route: 048
     Dates: start: 20091122, end: 20091122
  25. LEVOFLOXACIN [Concomitant]
     Indication: URINARY TRACT INFECTION
  26. MORPHINE SULFATE [Concomitant]
     Indication: PAIN
     Dosage: 4 MILLIGRAM
     Route: 041
     Dates: start: 20091119, end: 20091119
  27. PALONOSETRON [Concomitant]
     Dosage: .25 MILLIGRAM
     Route: 041
     Dates: start: 20091116, end: 20091116
  28. PALONOSETRON [Concomitant]
  29. ZOLEDRONIC ACID [Concomitant]
     Indication: METASTASES TO BONE
     Dosage: 4 MILLIGRAM
     Route: 041
     Dates: start: 20091116, end: 20091116
  30. ROWASA [Concomitant]
     Route: 065

REACTIONS (5)
  - NEUTROPENIA [None]
  - ABDOMINAL PAIN [None]
  - NEUTROPENIC INFECTION [None]
  - HYPERBILIRUBINAEMIA [None]
  - PYREXIA [None]
